FAERS Safety Report 5026296-3 (Version None)
Quarter: 2006Q2

REPORT INFORMATION
  Report Type: 
  Country: None (occurrence: None)
  Receive Date: 20060426
  Receipt Date: 20060123
  Transmission Date: 20061013
  Serious: Yes (Other)
  Sender: FDA-Public Use
  Company Number: 2006012479

PATIENT
  Age: 76 Year
  Sex: Male
  Weight: 99.7913 kg

DRUGS (10)
  1. LYRICA [Suspect]
     Indication: NEUROPATHY PERIPHERAL
     Dosage: 150 MG (50 MG,3 IN 1 D)
     Dates: start: 20060120, end: 20060101
  2. ARAVA [Concomitant]
  3. FOSAMAX [Concomitant]
  4. REMICADE [Concomitant]
  5. LOTEMAX [Concomitant]
  6. COSOPT [Concomitant]
  7. ALPHAGAN [Concomitant]
  8. CENTRUM (MINERALS NOS, VITAMINS NOS) [Concomitant]
  9. CALCIUM (CALICUM) [Concomitant]
  10. MEDROL ACETATE [Concomitant]

REACTIONS (4)
  - DIZZINESS [None]
  - HEART RATE INCREASED [None]
  - HEART RATE IRREGULAR [None]
  - NERVOUS SYSTEM DISORDER [None]
